FAERS Safety Report 4380712-9 (Version None)
Quarter: 2004Q2

REPORT INFORMATION
  Report Type: 
  Country: None (occurrence: None)
  Receive Date: 20040616
  Receipt Date: 20040609
  Transmission Date: 20050107
  Serious: No
  Sender: FDA-Public Use
  Company Number: 2004CG00836

PATIENT
  Age: 62 Year
  Sex: Male

DRUGS (5)
  1. NEXIUM [Suspect]
     Indication: ABDOMINAL PAIN UPPER
     Dates: start: 20040201, end: 20040501
  2. MOPRAL [Suspect]
     Indication: ABDOMINAL PAIN UPPER
     Dates: end: 20040201
  3. RENAGEL [Concomitant]
  4. BURINEX [Concomitant]
  5. TAHOR [Concomitant]

REACTIONS (1)
  - GYNAECOMASTIA [None]
